FAERS Safety Report 4638845-5 (Version None)
Quarter: 2005Q2

REPORT INFORMATION
  Report Type: 
  Country: None (occurrence: None)
  Receive Date: 20050415
  Receipt Date: 20050415
  Transmission Date: 20051028
  Serious: Yes (Other)
  Sender: FDA-Public Use
  Company Number: None

PATIENT
  Age: 5 Year
  Sex: Female
  Weight: 22.6799 kg

DRUGS (1)
  1. CIMETIDINE [Suspect]
     Indication: SKIN PAPILLOMA
     Dosage: 1 TSP 3X DAILY

REACTIONS (4)
  - CRYING [None]
  - DEPRESSION [None]
  - FATIGUE [None]
  - THINKING ABNORMAL [None]
